FAERS Safety Report 8195419-X (Version None)
Quarter: 2012Q1

REPORT INFORMATION
  Report Type: 
  Country: None (occurrence: None)
  Receive Date: 20120308
  Receipt Date: 20120227
  Transmission Date: 20120608
  Serious: Yes (Other)
  Sender: FDA-Public Use
  Company Number: PHEH2012US002769

PATIENT
  Sex: Male
  Weight: 145 kg

DRUGS (7)
  1. LISINOPRIL AND HYDROCHLOROTHIAZIDE [Suspect]
     Dosage: UNK
  2. RANITIDINE [Concomitant]
     Indication: GASTROOESOPHAGEAL REFLUX DISEASE
     Dosage: 150 MG DAILY
     Route: 048
  3. AMLODIPINE [Concomitant]
     Indication: HYPERTENSION
     Dosage: 10 MG, DAILY
     Route: 048
  4. METFORMIN HYDROCHLORIDE [Concomitant]
  5. NSAID'S [Concomitant]
  6. GLEEVEC [Suspect]
     Indication: GASTRIC CANCER
     Dosage: 400 MG, QD
     Route: 048
  7. METFORMIN HYDROCHLORIDE [Concomitant]
     Indication: DIABETES MELLITUS
     Dosage: 1000 MG DAILY
     Route: 048

REACTIONS (5)
  - SWOLLEN TONGUE [None]
  - PHARYNGEAL OEDEMA [None]
  - DYSARTHRIA [None]
  - DYSPHAGIA [None]
  - EYE DISCHARGE [None]
